FAERS Safety Report 8334404-1 (Version None)
Quarter: 2012Q2

REPORT INFORMATION
  Report Type: 
  Country: None (occurrence: None)
  Receive Date: 20120503
  Receipt Date: 20120419
  Transmission Date: 20120825
  Serious: No
  Sender: FDA-Public Use
  Company Number: US-JNJFOC-20120409107

PATIENT
  Sex: Female
  Weight: 82.56 kg

DRUGS (4)
  1. FLEXERIL [Concomitant]
     Indication: MUSCLE SPASMS
     Route: 065
  2. DURAGESIC-100 [Suspect]
     Indication: NEURALGIA
     Route: 062
     Dates: start: 20110101
  3. PERCOCET [Concomitant]
     Indication: MUSCLE SPASMS
     Route: 048
     Dates: start: 20110101
  4. CLONAZEPAM [Concomitant]
     Indication: MUSCLE SPASMS
     Route: 065

REACTIONS (6)
  - APPLICATION SITE RASH [None]
  - RASH PRURITIC [None]
  - WRONG TECHNIQUE IN DRUG USAGE PROCESS [None]
  - SCAB [None]
  - APPLICATION SITE VESICLES [None]
  - PRODUCT QUALITY ISSUE [None]
